FAERS Safety Report 13291104 (Version 1)
Quarter: 2017Q1

REPORT INFORMATION
  Report Type: Spontaneous
  Country: DE (occurrence: DE)
  Receive Date: 20170302
  Receipt Date: 20170302
  Transmission Date: 20170428
  Serious: Yes (Hospitalization, Other)
  Sender: FDA-Public Use
  Company Number: DE-JNJFOC-20170222549

PATIENT
  Age: 1 Day
  Sex: Female
  Weight: 3.52 kg

DRUGS (3)
  1. FOLIC ACID. [Concomitant]
     Active Substance: FOLIC ACID
     Indication: PROPHYLAXIS OF NEURAL TUBE DEFECT
     Route: 065
     Dates: start: 20150510, end: 20160221
  2. PAROXETINE. [Concomitant]
     Active Substance: PAROXETINE
     Indication: SCHIZOPHRENIA
     Route: 048
     Dates: start: 20150510, end: 20160221
  3. RISPERIDONE. [Suspect]
     Active Substance: RISPERIDONE
     Indication: SCHIZOPHRENIA
     Dates: start: 20150510

REACTIONS (2)
  - Neonatal infection [Unknown]
  - Foetal exposure during pregnancy [Unknown]
